FAERS Safety Report 4504615-1 (Version None)
Quarter: 2004Q4

REPORT INFORMATION
  Report Type: 
  Country: None (occurrence: None)
  Receive Date: 20041118
  Receipt Date: 20041112
  Transmission Date: 20050328
  Serious: Yes (Hospitalization)
  Sender: FDA-Public Use
  Company Number: FR-GLAXOSMITHKLINE-B0357030A

PATIENT
  Age: 3 Year
  Sex: Male
  Weight: 13 kg

DRUGS (5)
  1. CLAMOXYL [Suspect]
     Route: 048
  2. AUGMENTIN '125' [Suspect]
     Route: 048
  3. SMECTA [Concomitant]
     Route: 065
  4. TIORFAN [Concomitant]
     Route: 065
  5. ACETAMINOPHEN [Concomitant]
     Route: 065

REACTIONS (16)
  - ARTHRALGIA [None]
  - ASTHENIA [None]
  - ATROPHY OF TONGUE PAPILLAE [None]
  - BALANITIS [None]
  - CHEILITIS [None]
  - COUGH [None]
  - DYSPHAGIA [None]
  - DYSURIA [None]
  - ERYTHEMA [None]
  - ERYTHEMA MULTIFORME [None]
  - LYMPHADENOPATHY [None]
  - MYCOPLASMA INFECTION [None]
  - OEDEMA PERIPHERAL [None]
  - PRURITUS [None]
  - RASH GENERALISED [None]
  - SKIN DESQUAMATION [None]
